FAERS Safety Report 20695076 (Version 1)
Quarter: 2022Q2

REPORT INFORMATION
  Report Type: Spontaneous
  Country: US (occurrence: US)
  Receive Date: 20220411
  Receipt Date: 20220411
  Transmission Date: 20220720
  Serious: No
  Sender: FDA-Public Use
  Company Number: US-DSJP-DSU-2022-112447AA

PATIENT
  Age: 77 Year
  Sex: Female

DRUGS (1)
  1. EFFIENT [Suspect]
     Active Substance: PRASUGREL HYDROCHLORIDE
     Indication: Product used for unknown indication
     Dosage: UNK
     Route: 065
     Dates: start: 2011

REACTIONS (3)
  - COVID-19 [Unknown]
  - Blood pressure abnormal [Unknown]
  - Carotid artery stent insertion [Unknown]

NARRATIVE: CASE EVENT DATE: 20211201
